FAERS Safety Report 4848517-X (Version None)
Quarter: 2005Q4

REPORT INFORMATION
  Report Type: 
  Country: None (occurrence: None)
  Receive Date: 20051206
  Receipt Date: 20051121
  Transmission Date: 20060501
  Serious: Yes (Other)
  Sender: FDA-Public Use
  Company Number: US_0511123844

PATIENT
  Age: 10 Year
  Sex: Male
  Weight: 62.7 kg

DRUGS (1)
  1. STRATTERA [Suspect]
     Indication: ATTENTION DEFICIT/HYPERACTIVITY DISORDER
     Route: 048
     Dates: start: 20040101

REACTIONS (3)
  - HEPATIC ENZYME INCREASED [None]
  - INCREASED APPETITE [None]
  - WEIGHT INCREASED [None]
